FAERS Safety Report 9067685 (Version 1)
Quarter: 2013Q1

REPORT INFORMATION
  Report Type: Spontaneous
  Country: US (occurrence: US)
  Receive Date: 20130128
  Receipt Date: 20130128
  Transmission Date: 20140127
  Serious: Yes (Hospitalization)
  Sender: FDA-Public Use
  Company Number: US-PFIZER INC-2013032610

PATIENT
  Age: 60 Year
  Sex: Female
  Weight: 83.9 kg

DRUGS (6)
  1. AROMASIN [Suspect]
     Indication: BREAST CANCER
     Dosage: 25 MG, DAILY
     Dates: start: 2010
  2. SINGULAIR [Concomitant]
     Indication: ASTHMA
     Dosage: 10 MG, DAILY
  3. FLOVENT [Concomitant]
     Indication: ASTHMA
     Dosage: 110 MG, 2X/DAY
  4. PROAIR [Concomitant]
     Indication: ASTHMA
     Dosage: UNK, AS NEEDED
  5. OXYBUTYNIN [Concomitant]
     Indication: URINARY INCONTINENCE
     Dosage: 5 MG, DAILY
  6. VITAMIN D [Concomitant]
     Dosage: 60000 IU, WEEKLY

REACTIONS (2)
  - Pain [Unknown]
  - Gallbladder disorder [Unknown]
